FAERS Safety Report 24031616 (Version 1)
Quarter: 2024Q2

REPORT INFORMATION
  Report Type: Spontaneous
  Country: US (occurrence: US)
  Receive Date: 20240629
  Receipt Date: 20240629
  Transmission Date: 20240716
  Serious: Yes (Other)
  Sender: FDA-Public Use
  Company Number: US-ABBVIE-5810976

PATIENT
  Sex: Female

DRUGS (1)
  1. REFRESH OPTIVE ADVANCED [Suspect]
     Active Substance: CARBOXYMETHYLCELLULOSE SODIUM\GLYCERIN\POLYSORBATE 80
     Indication: Dry eye
     Dosage: UNKNOWN?STRENGTH GLYCERIN 10MG/ML;POLY 80 5MG/ML;CMC 5MG/ML?BOTH EYES; 2 SINGLE DOSE VIALS^
     Route: 047
     Dates: start: 202403, end: 20240601

REACTIONS (3)
  - Surgery [Unknown]
  - Eye irritation [Recovered/Resolved]
  - Drug ineffective [Not Recovered/Not Resolved]

NARRATIVE: CASE EVENT DATE: 20240101
